FAERS Safety Report 9684103 (Version 2)
Quarter: 2014Q1

REPORT INFORMATION
  Report Type: Report from Study
  Country: DE (occurrence: IL)
  Receive Date: 20131112
  Receipt Date: 20140219
  Transmission Date: 20141002
  Serious: Yes (Death, Hospitalization)
  Sender: FDA-Public Use
  Company Number: DE-ACTELION-A-NJ2013-91074

PATIENT
  Age: 79 Year
  Sex: Female

DRUGS (1)
  1. VENTAVIS [Suspect]
     Indication: PULMONARY HYPERTENSION
     Dosage: 5 TIMES DAILY
     Route: 055
     Dates: start: 20130121

REACTIONS (3)
  - Death [Fatal]
  - Medical observation [Recovered/Resolved]
  - Intentional drug misuse [Unknown]
